FAERS Safety Report 18564206 (Version 2)
Quarter: 2020Q4

REPORT INFORMATION
  Report Type: Report from Study
  Country: US (occurrence: US)
  Receive Date: 20201201
  Receipt Date: 20201231
  Transmission Date: 20210114
  Serious: Yes (Other)
  Sender: FDA-Public Use
  Company Number: US-GLAXOSMITHKLINE-US2020AMR128656

PATIENT
  Sex: Female
  Weight: 64.4 kg

DRUGS (4)
  1. NIRAPARIB [Suspect]
     Active Substance: NIRAPARIB
     Dosage: 100 MG, QD
  2. NIRAPARIB [Suspect]
     Active Substance: NIRAPARIB
     Indication: OVARIAN CANCER
     Dosage: 200 MG, QD (NOT OFF LABEL-142LBS)
     Route: 065
     Dates: start: 20200629
  3. NIRAPARIB [Suspect]
     Active Substance: NIRAPARIB
     Dosage: 200 MG, QD
  4. NIRAPARIB [Suspect]
     Active Substance: NIRAPARIB
     Dosage: 100 MG, QD
     Dates: start: 20201120

REACTIONS (12)
  - Nervousness [Recovered/Resolved]
  - Blood pressure increased [Recovered/Resolved]
  - Cataract operation [Unknown]
  - Productive cough [Unknown]
  - Salivary hypersecretion [Recovered/Resolved]
  - Tremor [Not Recovered/Not Resolved]
  - Contusion [Unknown]
  - Abdominal pain upper [Recovered/Resolved]
  - Postoperative adhesion [Recovering/Resolving]
  - Renal impairment [Recovered/Resolved]
  - Cough [Unknown]
  - Headache [Unknown]
